FAERS Safety Report 16560312 (Version 4)
Quarter: 2020Q2

REPORT INFORMATION
  Report Type: Report from Study
  Country: US (occurrence: US)
  Receive Date: 20190711
  Receipt Date: 20200505
  Transmission Date: 20200713
  Serious: Yes (Other)
  Sender: FDA-Public Use
  Company Number: US-SA-2019SA183130

PATIENT
  Age: 48 Year
  Sex: Female

DRUGS (1)
  1. TERIFLUNOMIDE. [Suspect]
     Active Substance: TERIFLUNOMIDE
     Indication: MULTIPLE SCLEROSIS
     Dosage: 14 MG, QD
     Route: 048
     Dates: start: 20190703

REACTIONS (8)
  - Eye infection bacterial [Not Recovered/Not Resolved]
  - Pain in extremity [Unknown]
  - Onychoclasis [Unknown]
  - Memory impairment [Not Recovered/Not Resolved]
  - Alopecia [Unknown]
  - Movement disorder [Unknown]
  - Myalgia [Unknown]
  - Condition aggravated [Not Recovered/Not Resolved]

NARRATIVE: CASE EVENT DATE: 20200426
